FAERS Safety Report 9240473 (Version 1)
Quarter: 2013Q2

REPORT INFORMATION
  Report Type: Spontaneous
  Country: US (occurrence: US)
  Receive Date: 20130418
  Receipt Date: 20130418
  Transmission Date: 20140414
  Serious: No
  Sender: FDA-Public Use
  Company Number: US-SANOFI-AVENTIS-2012SA040498

PATIENT
  Age: 84 Year
  Sex: Male

DRUGS (2)
  1. LOVENOX [Suspect]
     Route: 065
     Dates: start: 2010
  2. ENOXAPARIN SODIUM - WINTHROP [Suspect]
     Route: 065
     Dates: start: 201205

REACTIONS (2)
  - Muscle spasms [Not Recovered/Not Resolved]
  - Injection site bruising [Not Recovered/Not Resolved]
